FAERS Safety Report 19055961 (Version 5)
Quarter: 2023Q2

REPORT INFORMATION
  Report Type: Report from Study
  Country: US (occurrence: US)
  Receive Date: 20210324
  Receipt Date: 20230520
  Transmission Date: 20230722
  Serious: Yes (Other)
  Sender: FDA-Public Use
  Company Number: US-TAKEDA-US202026400

PATIENT
  Sex: Female

DRUGS (2)
  1. HUMAN IMMUNOGLOBULIN G [Suspect]
     Active Substance: HUMAN IMMUNOGLOBULIN G
     Indication: Primary immunodeficiency syndrome
     Dosage: UNK
     Route: 042
  2. HUMAN IMMUNOGLOBULIN G [Suspect]
     Active Substance: HUMAN IMMUNOGLOBULIN G
     Dosage: UNK
     Route: 065

REACTIONS (9)
  - Lymphoma [Unknown]
  - Sensitivity to weather change [Unknown]
  - COVID-19 [Unknown]
  - Multiple allergies [Unknown]
  - Immunoglobulins decreased [Unknown]
  - Obstruction [Unknown]
  - Somnolence [Unknown]
  - Oropharyngeal pain [Recovered/Resolved]
  - Cough [Unknown]
